FAERS Safety Report 11059330 (Version 1)
Quarter: 2015Q2

REPORT INFORMATION
  Report Type: Report from Study
  Country: DE (occurrence: DE)
  Receive Date: 20150423
  Receipt Date: 20150423
  Transmission Date: 20150821
  Serious: Yes (Hospitalization)
  Sender: FDA-Public Use
  Company Number: DE-OTSUKA-US-2014-12960

PATIENT

DRUGS (9)
  1. CIATYL-(Z) DEPOT [Concomitant]
     Indication: SCHIZOPHRENIA, PARANOID TYPE
     Dosage: 14.2857 MG, EVERY TWO WEEKS
     Route: 030
     Dates: start: 20131101, end: 20140819
  2. ABILIFY MAINTENA [Suspect]
     Active Substance: ARIPIPRAZOLE
     Dosage: 400 MG MILLIGRAM(S), UNK
     Route: 030
     Dates: start: 20140922, end: 20140922
  3. CIATYL-(Z) [Concomitant]
     Dosage: 50 MG MILLIGRAM(S), UNK
     Route: 048
     Dates: start: 20140907
  4. ABILIFY MAINTENA [Suspect]
     Active Substance: ARIPIPRAZOLE
     Dosage: 400 MG MILLIGRAM(S), UNK
     Route: 030
     Dates: start: 20141020, end: 20141020
  5. SIMVASTATIN. [Concomitant]
     Active Substance: SIMVASTATIN
     Indication: HYPERCHOLESTEROLAEMIA
     Dosage: 20 MG MILLIGRAM(S), QD
     Route: 048
     Dates: start: 200911
  6. ABILIFY MAINTENA [Suspect]
     Active Substance: ARIPIPRAZOLE
     Indication: SCHIZOPHRENIA, PARANOID TYPE
     Dosage: 400 MG MILLIGRAM(S), SINGLE
     Route: 030
     Dates: start: 20140819, end: 20140819
  7. METFORMIN [Concomitant]
     Active Substance: METFORMIN HYDROCHLORIDE
     Indication: TYPE 2 DIABETES MELLITUS
     Dosage: 500 MG MILLIGRAM(S), QD
     Route: 048
     Dates: start: 201308
  8. CIATYL-(Z) [Concomitant]
     Indication: SCHIZOPHRENIA, PARANOID TYPE
     Dosage: 25 MG MILLIGRAM(S), QD
     Route: 048
     Dates: start: 20131101, end: 20140819
  9. ABILIFY [Concomitant]
     Active Substance: ARIPIPRAZOLE
     Indication: SCHIZOPHRENIA, PARANOID TYPE
     Dosage: 20 MG MILLIGRAM(S), QD
     Route: 048
     Dates: start: 20131101, end: 20140902

REACTIONS (2)
  - Depression [Recovered/Resolved]
  - Suicidal ideation [Recovered/Resolved]

NARRATIVE: CASE EVENT DATE: 20140906
